FAERS Safety Report 8956073 (Version 1)
Quarter: 2012Q4

REPORT INFORMATION
  Report Type: 
  Country: BR (occurrence: BR)
  Receive Date: 20121210
  Receipt Date: 20121210
  Transmission Date: 20130627
  Serious: Yes (Other)
  Sender: FDA-Public Use
  Company Number: BR-ASTRAZENECA-2011SE73497

PATIENT
  Age: 81 Year
  Sex: Female

DRUGS (3)
  1. ATACAND [Suspect]
     Route: 048
  2. ATACAND COMB [Suspect]
     Dosage: 16/2.5 MG
     Route: 048
     Dates: start: 20111012, end: 20120917
  3. ATACAND COMB [Suspect]
     Dosage: 16/5 MG
     Route: 048

REACTIONS (4)
  - Blood pressure increased [Recovered/Resolved]
  - Blood pressure inadequately controlled [Unknown]
  - Headache [Recovered/Resolved]
  - Headache [Recovered/Resolved]
